FAERS Safety Report 12741509 (Version 1)
Quarter: 2016Q3

REPORT INFORMATION
  Report Type: Spontaneous
  Country: US (occurrence: US)
  Receive Date: 20160913
  Receipt Date: 20160913
  Transmission Date: 20161109
  Serious: Yes (Other)
  Sender: FDA-Public Use
  Company Number: None

PATIENT
  Age: 70 Year
  Sex: Female
  Weight: 45 kg

DRUGS (9)
  1. CALCIUM [Concomitant]
     Active Substance: CALCIUM
  2. ELOCON [Suspect]
     Active Substance: MOMETASONE FUROATE
  3. PUMPKIN SEED OIL [Concomitant]
  4. LEVOTHYROXINE. [Concomitant]
     Active Substance: LEVOTHYROXINE
  5. MELATONIN [Concomitant]
     Active Substance: MELATONIN
  6. VITAMIN D3 [Concomitant]
     Active Substance: CHOLECALCIFEROL
  7. VFEND [Suspect]
     Active Substance: VORICONAZOLE
     Indication: BRONCHOPULMONARY ASPERGILLOSIS
     Dosage: OTHER STRENGTH:;OTHER DOSE:;OTHER FREQUENCY:2 TABS DAY 1 BID;OTHER ROUTE:
     Route: 048
     Dates: start: 20160728
  8. FISH OIL [Concomitant]
     Active Substance: FISH OIL
  9. ZOMETA [Suspect]
     Active Substance: ZOLEDRONIC ACID

REACTIONS (5)
  - Fall [None]
  - Dyschromatopsia [None]
  - Blindness [None]
  - Overdose [None]
  - Halo vision [None]

NARRATIVE: CASE EVENT DATE: 20160728
